FAERS Safety Report 13117383 (Version 1)
Quarter: 2017Q1

REPORT INFORMATION
  Report Type: Spontaneous
  Country: BE (occurrence: BE)
  Receive Date: 20170116
  Receipt Date: 20170116
  Transmission Date: 20170428
  Serious: Yes (Hospitalization, Other)
  Sender: FDA-Public Use
  Company Number: BE-CORDEN PHARMA LATINA S.P.A.-BE-2017COR000003

PATIENT
  Age: 69 Year
  Sex: Male

DRUGS (4)
  1. CARBOPLATIN. [Suspect]
     Active Substance: CARBOPLATIN
     Indication: LUNG ADENOCARCINOMA
     Dosage: UNK
  2. GEMCITABINE [Suspect]
     Active Substance: GEMCITABINE\GEMCITABINE HYDROCHLORIDE
     Indication: LUNG ADENOCARCINOMA
     Dosage: UNK
  3. CARBOPLATIN. [Suspect]
     Active Substance: CARBOPLATIN
     Indication: SQUAMOUS CELL CARCINOMA
  4. GEMCITABINE [Suspect]
     Active Substance: GEMCITABINE\GEMCITABINE HYDROCHLORIDE
     Indication: SQUAMOUS CELL CARCINOMA

REACTIONS (9)
  - Confusional state [Unknown]
  - General physical health deterioration [Unknown]
  - Mucormycosis [Unknown]
  - C-reactive protein increased [Unknown]
  - Pancytopenia [Unknown]
  - Weight decreased [Unknown]
  - Blood lactate dehydrogenase increased [Unknown]
  - Electrolyte imbalance [Unknown]
  - Somnolence [Unknown]
